FAERS Safety Report 5705462-5 (Version None)
Quarter: 2008Q2

REPORT INFORMATION
  Report Type: 
  Country: None (occurrence: None)
  Receive Date: 20080415
  Receipt Date: 20080415
  Transmission Date: 20081010
  Serious: No
  Sender: FDA-Public Use
  Company Number: None

PATIENT
  Age: 44 Year
  Sex: Female
  Weight: 68.0396 kg

DRUGS (2)
  1. HEPARIN [Suspect]
     Indication: PHOTOPHERESIS
     Dosage: 10,000 UNITS ONCE
     Dates: start: 20080214, end: 20080214
  2. ANTICOAGULANT ACD-A SOLUTION [Concomitant]

REACTIONS (3)
  - FEELING HOT [None]
  - FLUSHING [None]
  - NAUSEA [None]
